FAERS Safety Report 12204781 (Version 1)
Quarter: 2016Q1

REPORT INFORMATION
  Report Type: Spontaneous
  Country: DE (occurrence: DE)
  Receive Date: 20160323
  Receipt Date: 20160323
  Transmission Date: 20160526
  Serious: Yes (Hospitalization)
  Sender: FDA-Public Use
  Company Number: DE-WATSON-2016-05980

PATIENT
  Sex: Male
  Weight: 2.7 kg

DRUGS (1)
  1. CITALOPRAM [Suspect]
     Active Substance: CITALOPRAM HYDROBROMIDE
     Indication: PRODUCT USED FOR UNKNOWN INDICATION
     Dosage: UNK UNK, UNKNOWN
     Route: 063
     Dates: end: 20160123

REACTIONS (7)
  - Opisthotonus [Unknown]
  - Agitation [Unknown]
  - Head circumference abnormal [Unknown]
  - Microcephaly [Unknown]
  - Oxygen saturation decreased [Recovering/Resolving]
  - Exposure during breast feeding [Unknown]
  - Apnoea [Recovering/Resolving]

NARRATIVE: CASE EVENT DATE: 20151228
